FAERS Safety Report 17540713 (Version 2)
Quarter: 2020Q1

REPORT INFORMATION
  Report Type: Spontaneous
  Country: JP (occurrence: JP)
  Receive Date: 20200313
  Receipt Date: 20200324
  Transmission Date: 20200409
  Serious: Yes (Other)
  Sender: FDA-Public Use
  Company Number: JP-ASTRAZENECA-2020SE17907

PATIENT
  Age: 25143 Day
  Sex: Female
  Weight: 51 kg

DRUGS (8)
  1. VIVIANT [Concomitant]
     Active Substance: BAZEDOXIFENE
     Indication: OSTEOPOROSIS
     Route: 048
  2. JUVELA N [Concomitant]
     Active Substance: TOCOPHERYL NICOTINATE, D-.ALPHA.
     Indication: HYPOVITAMINOSIS
     Route: 048
  3. LOXOPROFEN NA [Concomitant]
     Active Substance: LOXOPROFEN SODIUM
     Indication: BACK PAIN
     Route: 062
  4. TAGRISSO [Suspect]
     Active Substance: OSIMERTINIB
     Indication: NON-SMALL CELL LUNG CANCER
     Route: 048
     Dates: start: 20200108, end: 20200129
  5. TAGRISSO [Suspect]
     Active Substance: OSIMERTINIB
     Indication: NON-SMALL CELL LUNG CANCER
     Route: 048
     Dates: start: 20200228
  6. CP [Concomitant]
     Indication: HYPOVITAMINOSIS
     Route: 048
  7. AZILVA [Concomitant]
     Active Substance: AZILSARTAN KAMEDOXOMIL
     Indication: HYPERTENSION
     Route: 048
  8. ROSUVASTATIN OD [Concomitant]
     Indication: HYPERLIPIDAEMIA
     Route: 048

REACTIONS (4)
  - Pleural effusion [Recovering/Resolving]
  - Pulmonary congestion [Unknown]
  - Cardiac failure congestive [Recovered/Resolved]
  - Cardiomegaly [Unknown]

NARRATIVE: CASE EVENT DATE: 20200205
